FAERS Safety Report 18673983 (Version 1)
Quarter: 2020Q4

REPORT INFORMATION
  Report Type: Spontaneous
  Country: US (occurrence: US)
  Receive Date: 20201228
  Receipt Date: 20201228
  Transmission Date: 20210114
  Serious: Yes (Life-Threatening)
  Sender: FDA-Public Use
  Company Number: US-FRESENIUS KABI-FK202014011

PATIENT
  Age: 42 Year
  Sex: Male

DRUGS (2)
  1. ENOXAPARIN [Suspect]
     Active Substance: ENOXAPARIN
     Indication: THROMBOSIS PROPHYLAXIS
     Route: 058
  2. VECURONIUM (MANUFACTURER UNKNOWN) [Suspect]
     Active Substance: VECURONIUM BROMIDE
     Indication: MEDICAL INDUCTION OF COMA
     Dosage: UNKNOWN
     Route: 065

REACTIONS (2)
  - Cardiac arrest [Recovered/Resolved]
  - Pulmonary embolism [Recovered/Resolved]
